FAERS Safety Report 19868821 (Version 1)
Quarter: 2021Q3

REPORT INFORMATION
  Report Type: Spontaneous
  Country: ES (occurrence: ES)
  Receive Date: 20210922
  Receipt Date: 20210922
  Transmission Date: 20211014
  Serious: Yes (Life-Threatening, Disabling)
  Sender: FDA-Public Use
  Company Number: ES-BAYER-2021-213223

PATIENT
  Age: 55 Year
  Sex: Female
  Weight: 48 kg

DRUGS (1)
  1. GADOVIST [Suspect]
     Active Substance: GADOBUTROL
     Indication: MAGNETIC RESONANCE IMAGING ABDOMINAL
     Dosage: UNK, ONCE
     Route: 042
     Dates: start: 20201129, end: 20201129

REACTIONS (14)
  - Sarcopenia [Unknown]
  - Dizziness [Unknown]
  - Fibromyalgia [Unknown]
  - Nausea [Unknown]
  - Rheumatoid arthritis [Unknown]
  - Iron deficiency [Unknown]
  - Confusional state [Unknown]
  - Herpes zoster [Unknown]
  - Muscle spasms [Unknown]
  - Weight decreased [Unknown]
  - Hypertension [Unknown]
  - Effusion [Unknown]
  - Hepatic enzyme increased [Unknown]
  - Blood urea increased [Unknown]

NARRATIVE: CASE EVENT DATE: 20201204
